FAERS Safety Report 14614418 (Version 1)
Quarter: 2018Q1

REPORT INFORMATION
  Report Type: Spontaneous
  Country: US (occurrence: US)
  Receive Date: 20180308
  Receipt Date: 20180308
  Transmission Date: 20180509
  Serious: Yes (Life-Threatening, Other)
  Sender: FDA-Public Use
  Company Number: None

PATIENT
  Age: 60 Year
  Sex: Male
  Weight: 90 kg

DRUGS (2)
  1. SUBOXONE GENERIC [Concomitant]
     Dates: start: 20180208, end: 20180307
  2. GENERIC SUBOXONE TABLETS NOT LISTED ON PRESCRIPTION BOTTLE 8/2MG [Suspect]
     Active Substance: BUPRENORPHINE HYDROCHLORIDE\NALOXONE HYDROCHLORIDE
     Route: 048
     Dates: start: 20180207, end: 20180307

REACTIONS (3)
  - Drug withdrawal syndrome [None]
  - Drug dependence [None]
  - Disease recurrence [None]

NARRATIVE: CASE EVENT DATE: 20180214
